FAERS Safety Report 9305460 (Version 1)
Quarter: 2013Q2

REPORT INFORMATION
  Report Type: Report from Study
  Country: US (occurrence: US)
  Receive Date: 20130523
  Receipt Date: 20130523
  Transmission Date: 20140414
  Serious: Yes (Hospitalization)
  Sender: FDA-Public Use
  Company Number: US-BAYER-2013-036891

PATIENT
  Age: 63 Year
  Sex: Male
  Weight: 82.54 kg

DRUGS (1)
  1. NEXAVAR [Suspect]
     Indication: HEPATIC CANCER
     Dosage: 800 MG, BID (2X400MG)
     Route: 048
     Dates: start: 20130129

REACTIONS (1)
  - Rash [None]
